FAERS Safety Report 5528175-1 (Version None)
Quarter: 2007Q4

REPORT INFORMATION
  Report Type: 
  Country: None (occurrence: None)
  Receive Date: 20071128
  Receipt Date: 20071116
  Transmission Date: 20080405
  Serious: Yes (Hospitalization)
  Sender: FDA-Public Use
  Company Number: DE-PFIZER INC-2005099435

PATIENT
  Sex: Female

DRUGS (3)
  1. AROMASIN [Suspect]
     Indication: BREAST CANCER
     Route: 048
     Dates: start: 20020814, end: 20070813
  2. EPIRUBICIN [Concomitant]
     Dosage: TEXT:UNKNOWN-FREQ:UNKNOWN
     Route: 065
     Dates: start: 20020501, end: 20020701
  3. CYCLOPHOSPHAMIDE [Concomitant]
     Dosage: TEXT:UNKNOWN-FREQ:UNKNOWN
     Route: 065
     Dates: start: 20020501, end: 20020701

REACTIONS (2)
  - INSOMNIA [None]
  - RESTLESSNESS [None]
